FAERS Safety Report 4448351-9 (Version None)
Quarter: 2004Q3

REPORT INFORMATION
  Report Type: 
  Country: None (occurrence: None)
  Receive Date: 20040913
  Receipt Date: 20040831
  Transmission Date: 20050211
  Serious: Yes (Death, Life-Threatening, Hospitalization, Disabling)
  Sender: FDA-Public Use
  Company Number: STA-AE-04-MTX-396

PATIENT
  Age: 76 Year
  Sex: Female

DRUGS (7)
  1. METHOTREXATE [Suspect]
     Indication: RHEUMATOID ARTHRITIS
     Dosage: 7.5 MG 1X PER 1 WK, ORAL
     Route: 048
     Dates: start: 20040414, end: 20040803
  2. REMICADE [Suspect]
     Indication: RHEUMATOID ARTHRITIS
     Dosage: 173 MG, IV
     Route: 042
     Dates: start: 20040603, end: 20040715
  3. TRAMADOL HCL [Concomitant]
  4. ROFECOXIB [Concomitant]
  5. QUININE [Concomitant]
  6. PARACETAMOL [Concomitant]
  7. FERROUS SULFATE TAB [Concomitant]

REACTIONS (8)
  - ANAEMIA [None]
  - ASPERGILLOSIS [None]
  - LIVER FUNCTION TEST ABNORMAL [None]
  - METABOLIC ACIDOSIS [None]
  - PNEUMOCYSTIS CARINII PNEUMONIA [None]
  - PNEUMONITIS [None]
  - RENAL FAILURE [None]
  - RESPIRATORY FAILURE [None]
